FAERS Safety Report 20921628 (Version 2)
Quarter: 2022Q3

REPORT INFORMATION
  Report Type: Report from Study
  Country: DE (occurrence: None)
  Receive Date: 20220606
  Receipt Date: 20220828
  Transmission Date: 20221027
  Serious: Yes (Hospitalization)
  Sender: FDA-Public Use
  Company Number: DE-ROCHE-3107927

PATIENT
  Age: 53 Year
  Sex: Female
  Weight: 70 kg

DRUGS (35)
  1. ATEZOLIZUMAB [Suspect]
     Active Substance: ATEZOLIZUMAB
     Indication: Breast cancer
     Dosage: DATE OF LAST DOSE PRIOR TO SAE: 14/APR/2022
     Route: 041
     Dates: start: 20220120
  2. PACLITAXEL [Suspect]
     Active Substance: PACLITAXEL
     Indication: Breast cancer
     Dosage: DATE OF LAST DOSE PRIOR TO SAE: 07/APR/2022
     Route: 042
     Dates: start: 20220120
  3. CARBOPLATIN [Suspect]
     Active Substance: CARBOPLATIN
     Indication: Breast cancer
     Dosage: DATE OF LAST DOSE PRIOR TO SAE: 07/APR/2022
     Route: 042
     Dates: start: 20220120
  4. EPIRUBICIN [Suspect]
     Active Substance: EPIRUBICIN
     Indication: Breast cancer
     Dosage: DATE OF LAST DOSE PRIOR TO SAE:14/APR/2022
     Route: 042
     Dates: start: 20220414
  5. CYCLOPHOSPHAMIDE [Suspect]
     Active Substance: CYCLOPHOSPHAMIDE
     Indication: Breast cancer
     Dosage: DATE OF LAST DOSE PRIOR TO SAE: 14/APR/2022
     Route: 042
     Dates: start: 20220414
  6. RIVAROXABAN [Concomitant]
     Active Substance: RIVAROXABAN
     Dates: start: 20220421, end: 20220426
  7. RIVAROXABAN [Concomitant]
     Active Substance: RIVAROXABAN
     Dates: start: 20220429, end: 20220430
  8. CEFUROXIME [Concomitant]
     Active Substance: CEFUROXIME
     Dates: start: 20220422, end: 20220426
  9. FONDAPARINUX [Concomitant]
     Active Substance: FONDAPARINUX
     Dates: start: 20220324, end: 20220420
  10. PEGFILGRASTIM [Concomitant]
     Active Substance: PEGFILGRASTIM
     Dates: start: 20220407
  11. PEGFILGRASTIM [Concomitant]
     Active Substance: PEGFILGRASTIM
     Dates: start: 20220415, end: 20220616
  12. FILGRASTIM [Concomitant]
     Active Substance: FILGRASTIM
     Dates: start: 20220210, end: 20220406
  13. FILGRASTIM [Concomitant]
     Active Substance: FILGRASTIM
     Dosage: 30.000.000 IU
     Dates: start: 20220214, end: 20220413
  14. ESTRADIOL [Concomitant]
     Active Substance: ESTRADIOL
     Dates: start: 2020, end: 20220111
  15. PROGESTERONE [Concomitant]
     Active Substance: PROGESTERONE
     Dates: start: 2020, end: 20200111
  16. METOCLOPRAMIDE [Concomitant]
     Active Substance: METOCLOPRAMIDE
     Dates: start: 20220120, end: 20220426
  17. ONDANSETRON [Concomitant]
     Active Substance: ONDANSETRON
     Dates: start: 20220120, end: 20220426
  18. THIAMINE [Concomitant]
     Active Substance: THIAMINE
     Dates: start: 20220120, end: 20220426
  19. APREPITANT [Concomitant]
     Active Substance: APREPITANT
     Dates: start: 20220120, end: 20220407
  20. APREPITANT [Concomitant]
     Active Substance: APREPITANT
     Dates: start: 20220120, end: 20220409
  21. GRANISETRON [Concomitant]
     Active Substance: GRANISETRON
     Dates: start: 20220120, end: 20220414
  22. PANTOPRAZOLE SODIUM [Concomitant]
     Active Substance: PANTOPRAZOLE SODIUM
     Dates: start: 20220120, end: 20220414
  23. PANTOPRAZOLE SODIUM [Concomitant]
     Active Substance: PANTOPRAZOLE SODIUM
     Dates: start: 20220225, end: 20220317
  24. PANTOPRAZOLE SODIUM [Concomitant]
     Active Substance: PANTOPRAZOLE SODIUM
     Dates: start: 20220318, end: 20220324
  25. PANTOPRAZOLE SODIUM [Concomitant]
     Active Substance: PANTOPRAZOLE SODIUM
     Dates: start: 20220325, end: 20220429
  26. DEXAMETHASONE [Concomitant]
     Active Substance: DEXAMETHASONE
     Dates: start: 20220120, end: 20220203
  27. DEXAMETHASONE [Concomitant]
     Active Substance: DEXAMETHASONE
     Dates: start: 20220210, end: 20220217
  28. DEXAMETHASONE [Concomitant]
     Active Substance: DEXAMETHASONE
     Dates: start: 20220224, end: 20220407
  29. DEXAMETHASONE [Concomitant]
     Active Substance: DEXAMETHASONE
     Dates: start: 20220414, end: 20220615
  30. CLEMASTINE [Concomitant]
     Active Substance: CLEMASTINE
     Dates: start: 20220120, end: 20220407
  31. LACTOBACILLUS ACIDOPHILUS [Concomitant]
     Active Substance: LACTOBACILLUS ACIDOPHILUS
     Dates: start: 20220303, end: 20220314
  32. HEXETIDINE [Concomitant]
     Active Substance: HEXETIDINE
     Dates: start: 20220303, end: 20220308
  33. MESNA [Concomitant]
     Active Substance: MESNA
     Dates: start: 20220414, end: 20220615
  34. NETUPITANT [Concomitant]
     Active Substance: NETUPITANT
     Dates: start: 20220414, end: 20220414
  35. PALONOSETRON HYDROCHLORIDE [Concomitant]
     Active Substance: PALONOSETRON HYDROCHLORIDE
     Dates: start: 20220414, end: 20220414

REACTIONS (1)
  - Pyrexia [Recovered/Resolved]

NARRATIVE: CASE EVENT DATE: 20220426
